FAERS Safety Report 16091311 (Version 3)
Quarter: 2019Q2

REPORT INFORMATION
  Report Type: Not Available
  Country: US (occurrence: US)
  Receive Date: 20190319
  Receipt Date: 20190403
  Transmission Date: 20190711
  Serious: Yes (Hospitalization)
  Sender: FDA-Public Use
  Company Number: US-NEUROCRINE BIOSCIENCES INC.-2019NBI00647

PATIENT
  Sex: Female

DRUGS (31)
  1. NOVOLOG [Concomitant]
     Active Substance: INSULIN ASPART
     Dosage: INSULIN PEN 100 UNIT/ML; THREE TIMES A DAY (BREAKFAST, LUNCH AND SUPPER)
     Route: 058
     Dates: start: 20180324
  2. LEVEMIR [Concomitant]
     Active Substance: INSULIN DETEMIR
     Dosage: 100 UNIT/ML (3 ML); AT BED TIME
     Route: 058
     Dates: start: 20190313
  3. LEVEMIR [Concomitant]
     Active Substance: INSULIN DETEMIR
     Dosage: 100 UNIT/ML (3 ML); IN THE MORNING
     Route: 058
     Dates: start: 20190313
  4. LEVOTHYROXINE. [Concomitant]
     Active Substance: LEVOTHYROXINE
     Route: 048
     Dates: start: 20190313
  5. MIRALAX [Concomitant]
     Active Substance: POLYETHYLENE GLYCOL 3350
     Dosage: DISSOLVE IN 8 OZ OF FLUID; IN THE MORNING
     Route: 048
  6. TRAMADOL. [Concomitant]
     Active Substance: TRAMADOL
     Dosage: AS REQUIRED
     Route: 048
     Dates: start: 20171026
  7. LISINOPRIL. [Concomitant]
     Active Substance: LISINOPRIL
     Dosage: IN THE MORNING
     Route: 048
     Dates: start: 20170717
  8. ASPIRIN. [Concomitant]
     Active Substance: ASPIRIN
     Dosage: IN THE MORNING
     Route: 048
     Dates: start: 20180324
  9. INGREZZA [Suspect]
     Active Substance: VALBENAZINE
     Route: 048
     Dates: start: 20190223
  10. MELATONIN [Concomitant]
     Active Substance: MELATONIN
     Dates: start: 20190313
  11. SEROQUEL [Concomitant]
     Active Substance: QUETIAPINE FUMARATE
     Indication: BIPOLAR DISORDER
     Route: 048
     Dates: start: 20190313
  12. TAMIFLU [Concomitant]
     Active Substance: OSELTAMIVIR PHOSPHATE
     Dates: start: 20190316
  13. BISACODYL. [Concomitant]
     Active Substance: BISACODYL
     Route: 054
     Dates: start: 20170717
  14. ARTIFICIAL TEARS [Concomitant]
     Active Substance: GLYCERIN\HYPROMELLOSES\POLYETHYLENE GLYCOL 400
     Dosage: 1 DROP IN BOTH EYES
     Route: 047
     Dates: start: 20171218
  15. ALBUTEROL SULFATE. [Concomitant]
     Active Substance: ALBUTEROL SULFATE
     Dosage: 2.5MG/3ML; AS NEEDED
     Dates: start: 20190313
  16. NOVOLOG [Concomitant]
     Active Substance: INSULIN ASPART
     Route: 058
     Dates: start: 20190313
  17. INGREZZA [Suspect]
     Active Substance: VALBENAZINE
     Indication: TARDIVE DYSKINESIA
     Route: 048
     Dates: start: 20190215, end: 20190222
  18. PALIPERIDONE. [Concomitant]
     Active Substance: PALIPERIDONE
     Dosage: IN THE MORNING
     Dates: start: 20190313
  19. MAALOX ADVANCED [Concomitant]
     Dosage: 200-200-20MG/5ML
     Route: 048
     Dates: start: 20170717
  20. BIOFREEZE [Concomitant]
     Active Substance: MENTHOL
     Dosage: AS NEEDED
     Route: 061
     Dates: start: 20170804
  21. IRON [Concomitant]
     Active Substance: IRON
     Dosage: IN THE MORNING AND AT NIGHT
     Route: 048
     Dates: start: 20180514
  22. VASCEPA [Concomitant]
     Active Substance: ICOSAPENT ETHYL
     Indication: TARDIVE DYSKINESIA
     Dosage: IN THE MORNING
     Dates: start: 20190313
  23. TYLENOL [Concomitant]
     Active Substance: ACETAMINOPHEN
     Indication: PYREXIA
  24. SENNA PLUS [Concomitant]
     Active Substance: DOCUSATE SODIUM\SENNOSIDES\SENNOSIDES A AND B
     Dosage: 8.6-50 MG; ONCE DAILY IN THE MORNING
     Route: 048
     Dates: start: 20180417
  25. SIMVASTATIN. [Concomitant]
     Active Substance: SIMVASTATIN
     Route: 048
  26. TYLENOL [Concomitant]
     Active Substance: ACETAMINOPHEN
     Indication: PAIN
     Dosage: AS NEEDED
     Route: 048
     Dates: start: 20170717
  27. VITAMIN D3 [Concomitant]
     Active Substance: CHOLECALCIFEROL
     Dosage: IN THE MORNING
     Route: 048
     Dates: start: 20170717
  28. ACETAMINOPHEN. [Concomitant]
     Active Substance: ACETAMINOPHEN
     Indication: PYREXIA
     Dosage: AS REQUIRED
     Route: 054
     Dates: start: 20170717
  29. ACETAMINOPHEN. [Concomitant]
     Active Substance: ACETAMINOPHEN
     Indication: PAIN
  30. DIVALPROEX [Concomitant]
     Active Substance: DIVALPROEX SODIUM
     Dosage: AT BED TIME
     Route: 048
     Dates: start: 20170717
  31. MULTIVITAMIN [Concomitant]
     Active Substance: VITAMINS
     Dosage: IN THE MORNING
     Route: 048
     Dates: start: 20170718

REACTIONS (2)
  - Hyponatraemia [Unknown]
  - Bipolar I disorder [Unknown]
